FAERS Safety Report 19453417 (Version 3)
Quarter: 2022Q3

REPORT INFORMATION
  Report Type: Spontaneous
  Country: FR (occurrence: FR)
  Receive Date: 20210623
  Receipt Date: 20220711
  Transmission Date: 20221026
  Serious: Yes (Hospitalization, Congenital Anomaly, Other)
  Sender: FDA-Public Use
  Company Number: FR-NOVARTISPH-NVSC2021FR134569

PATIENT
  Age: 14 Year
  Sex: Male

DRUGS (5)
  1. CLONAZEPAM [Suspect]
     Active Substance: CLONAZEPAM
     Indication: Foetal exposure during pregnancy
     Dosage: UNK
     Route: 064
  2. CARBAMAZEPINE [Suspect]
     Active Substance: CARBAMAZEPINE
     Indication: Foetal exposure during pregnancy
     Dosage: UNK
     Route: 064
  3. CARBAMAZEPINE [Suspect]
     Active Substance: CARBAMAZEPINE
     Dosage: 400 MG, BID
     Route: 064
     Dates: start: 20020727, end: 20030413
  4. VALPROATE SODIUM [Suspect]
     Active Substance: VALPROATE SODIUM
     Indication: Foetal exposure during pregnancy
     Dosage: UNK
     Route: 064
  5. VALPROATE SODIUM [Suspect]
     Active Substance: VALPROATE SODIUM
     Indication: Foetal exposure during pregnancy
     Dosage: UNK, BID
     Route: 064
     Dates: start: 20020727, end: 20030413

REACTIONS (30)
  - Scrotal cyst [Unknown]
  - Autism spectrum disorder [Not Recovered/Not Resolved]
  - Foetal exposure during pregnancy [Unknown]
  - Psychomotor skills impaired [Unknown]
  - Communication disorder [Unknown]
  - Social avoidant behaviour [Unknown]
  - Speech disorder developmental [Unknown]
  - Psychomotor retardation [Unknown]
  - Aphasia [Unknown]
  - Hypertonia [Unknown]
  - Inguinal hernia [Unknown]
  - Haemangioma [Unknown]
  - Developmental delay [Not Recovered/Not Resolved]
  - Language disorder [Not Recovered/Not Resolved]
  - Dysmorphism [Unknown]
  - Bronchiolitis [Unknown]
  - Myopia [Unknown]
  - Attention deficit hyperactivity disorder [Unknown]
  - Nasopharyngitis [Unknown]
  - Gynaecomastia [Unknown]
  - Visual impairment [Unknown]
  - Enuresis [Unknown]
  - Ear infection [Unknown]
  - Overweight [Unknown]
  - Respiratory disorder [Unknown]
  - Tonsillitis [Unknown]
  - Anxiety [Unknown]
  - Behaviour disorder [Unknown]
  - Fatigue [Unknown]
  - Mental disorder [Unknown]

NARRATIVE: CASE EVENT DATE: 20030413
